FAERS Safety Report 11038414 (Version 2)
Quarter: 2015Q2

REPORT INFORMATION
  Report Type: Spontaneous
  Country: JP (occurrence: JP)
  Receive Date: 20150416
  Receipt Date: 20150527
  Transmission Date: 20150821
  Serious: Yes (Hospitalization, Other)
  Sender: FDA-Public Use
  Company Number: JP-BAXTER-2015BAX014478

PATIENT
  Age: 62 Year
  Sex: Male
  Weight: 49.1 kg

DRUGS (15)
  1. IFOSFAMIDE FOR INJECTION [Suspect]
     Active Substance: IFOSFAMIDE
     Indication: ANGIOCENTRIC LYMPHOMA
     Dosage: 2 COURSES
     Route: 041
     Dates: start: 20150304, end: 20150306
  2. DEXAMETHASONE SODIUM PHOSPHATE. [Suspect]
     Active Substance: DEXAMETHASONE SODIUM PHOSPHATE
     Indication: ANGIOCENTRIC LYMPHOMA
     Route: 041
     Dates: start: 20150304, end: 20150306
  3. CEFEPIME [Suspect]
     Active Substance: CEFEPIME\CEFEPIME HYDROCHLORIDE
     Indication: PRODUCT USED FOR UNKNOWN INDICATION
     Route: 065
     Dates: end: 20150312
  4. FOLINIC ACID [Concomitant]
     Active Substance: LEUCOVORIN
     Indication: LYMPHOMA
     Route: 065
     Dates: start: 20150305, end: 20150306
  5. BIPERIDEN HYDROCHLORIDE [Suspect]
     Active Substance: BIPERIDEN HYDROCHLORIDE
     Indication: PRODUCT USED FOR UNKNOWN INDICATION
     Route: 065
     Dates: end: 20150311
  6. PLATELET TRANSFUSION [Concomitant]
     Indication: PRODUCT USED FOR UNKNOWN INDICATION
     Route: 065
     Dates: start: 20150212, end: 20150328
  7. L-ASPARAGINASE [Suspect]
     Active Substance: ASPARAGINASE
     Indication: ANGIOCENTRIC LYMPHOMA
     Route: 065
     Dates: start: 20150303, end: 20150310
  8. LEUNASE [Concomitant]
     Active Substance: ASPARAGINASE
     Indication: PRODUCT USED FOR UNKNOWN INDICATION
     Route: 065
  9. UROMITEXAN 400 MG [Suspect]
     Active Substance: MESNA
     Indication: ANGIOCENTRIC LYMPHOMA
     Dosage: 800 MG/DAY
     Route: 041
     Dates: start: 20150304, end: 20150306
  10. CALCIUM FOLINATE [Concomitant]
     Active Substance: LEUCOVORIN CALCIUM
     Indication: ANGIOCENTRIC LYMPHOMA
     Route: 042
     Dates: start: 20150305, end: 20150306
  11. METHOTREXATE [Suspect]
     Active Substance: METHOTREXATE
     Indication: ANGIOCENTRIC LYMPHOMA
     Route: 041
     Dates: start: 20150303, end: 20150304
  12. GRANISETRON [Suspect]
     Active Substance: GRANISETRON
     Indication: ANGIOCENTRIC LYMPHOMA
     Route: 041
     Dates: start: 20150303, end: 20150306
  13. HALOPERIDOL. [Suspect]
     Active Substance: HALOPERIDOL
     Indication: DELIRIUM
     Route: 065
     Dates: start: 20150306, end: 20150311
  14. CELLTOP 100 MG/5 ML, SOLUTION INJECTABLE POUR PERFUSION [Suspect]
     Active Substance: ETOPOSIDE
     Indication: ANGIOCENTRIC LYMPHOMA
     Route: 041
     Dates: start: 20150304, end: 20150306
  15. PACKED RED BLOOD CELL TRANSFUSION [Concomitant]
     Active Substance: HUMAN RED BLOOD CELL
     Indication: PRODUCT USED FOR UNKNOWN INDICATION
     Route: 065
     Dates: start: 20150212, end: 20150328

REACTIONS (2)
  - Delirium [Recovered/Resolved]
  - Hepatic enzyme increased [Unknown]

NARRATIVE: CASE EVENT DATE: 20150303
